FAERS Safety Report 5310450-7 (Version None)
Quarter: 2007Q2

REPORT INFORMATION
  Report Type: 
  Country: None (occurrence: None)
  Receive Date: 20070427
  Receipt Date: 20070419
  Transmission Date: 20071010
  Serious: Yes (Death, Other)
  Sender: FDA-Public Use
  Company Number: GR-ABBOTT-07P-066-0365539-00

PATIENT
  Age: 85 Year
  Sex: Male
  Weight: 58 kg

DRUGS (10)
  1. ZEMPLAR [Suspect]
     Indication: HYPERPARATHYROIDISM SECONDARY
     Route: 042
     Dates: start: 20061208, end: 20070411
  2. INTELECTA [Concomitant]
     Indication: MALNUTRITION
     Route: 042
     Dates: start: 20050617, end: 20070411
  3. DARBEPOETIN ALFA [Concomitant]
     Indication: ANAEMIA
     Route: 042
     Dates: start: 20050802, end: 20070411
  4. IRBESARTAN [Concomitant]
     Indication: HYPERTENSION
     Route: 048
     Dates: start: 20051207, end: 20070411
  5. SEVELAMER HYDROCHLORIDE [Concomitant]
     Indication: HYPERPHOSPHATAEMIA
     Route: 048
     Dates: start: 20061004, end: 20070411
  6. TITRALAC [Concomitant]
     Indication: HYPERPHOSPHATAEMIA
     Route: 048
     Dates: start: 20061004, end: 20070411
  7. COSMOFER [Concomitant]
     Indication: IRON DEFICIENCY
     Route: 048
     Dates: start: 20060329, end: 20070411
  8. INSULINE PROTAPHANE [Concomitant]
     Indication: DIABETES MELLITUS
     Route: 058
     Dates: start: 20030819, end: 20070411
  9. CLOPIDOGREL BISULFATE [Concomitant]
     Indication: ANTICOAGULANT THERAPY
     Route: 048
     Dates: start: 20020710, end: 20070411
  10. ALBUMIN (HUMAN) [Concomitant]
     Indication: HYPOALBUMINAEMIA
     Route: 048
     Dates: start: 20070224, end: 20070411

REACTIONS (3)
  - CARDIO-RESPIRATORY ARREST [None]
  - CATHETER RELATED COMPLICATION [None]
  - HAEMORRHAGE [None]
